FAERS Safety Report 7997643-5 (Version None)
Quarter: 2011Q4

REPORT INFORMATION
  Report Type: 
  Country: None (occurrence: None)
  Receive Date: 20111221
  Receipt Date: 20111213
  Transmission Date: 20120403
  Serious: Yes (Hospitalization)
  Sender: FDA-Public Use
  Company Number: NL-JNJFOC-20111206028

PATIENT
  Sex: Female
  Weight: 46 kg

DRUGS (30)
  1. DOXORUBICIN HCL [Suspect]
     Indication: DIFFUSE LARGE B-CELL LYMPHOMA
     Route: 042
  2. PREDNISONE [Suspect]
     Route: 048
  3. RITUXIMAB [Suspect]
     Route: 042
  4. NEUPOGEN [Suspect]
     Route: 058
  5. CYCLOPHOSPHAMIDE [Suspect]
     Route: 065
  6. DOXORUBICIN HCL [Suspect]
     Route: 042
  7. NEUPOGEN [Suspect]
     Route: 058
     Dates: start: 20111005
  8. NEUPOGEN [Suspect]
     Route: 058
  9. CYCLOPHOSPHAMIDE [Suspect]
     Route: 065
     Dates: start: 20111005
  10. RITUXIMAB [Suspect]
     Indication: DIFFUSE LARGE B-CELL LYMPHOMA
     Route: 042
  11. RITUXIMAB [Suspect]
     Route: 042
  12. NEUPOGEN [Suspect]
     Route: 058
  13. NEUPOGEN [Suspect]
     Route: 058
  14. PREDNISONE [Suspect]
     Indication: DIFFUSE LARGE B-CELL LYMPHOMA
     Route: 048
  15. RITUXIMAB [Suspect]
     Route: 042
  16. RITUXIMAB [Suspect]
     Route: 042
  17. DOXORUBICIN HCL [Suspect]
     Route: 042
  18. PREDNISONE [Suspect]
     Route: 048
  19. DOXORUBICIN HCL [Suspect]
     Route: 042
     Dates: start: 20111005
  20. PREDNISONE [Suspect]
     Route: 048
     Dates: start: 20111005
  21. DOXORUBICIN HCL [Suspect]
     Route: 042
  22. DOXORUBICIN HCL [Suspect]
     Route: 042
  23. NEUPOGEN [Suspect]
     Indication: DIFFUSE LARGE B-CELL LYMPHOMA
     Route: 058
  24. PREDNISONE [Suspect]
     Route: 048
  25. PREDNISONE [Suspect]
     Route: 048
  26. CYCLOPHOSPHAMIDE [Suspect]
     Indication: DIFFUSE LARGE B-CELL LYMPHOMA
     Route: 065
  27. CYCLOPHOSPHAMIDE [Suspect]
     Route: 065
  28. CYCLOPHOSPHAMIDE [Suspect]
     Route: 065
  29. CYCLOPHOSPHAMIDE [Suspect]
     Route: 065
  30. RITUXIMAB [Suspect]
     Route: 042
     Dates: start: 20111005

REACTIONS (1)
  - CIRCULATORY COLLAPSE [None]
